FAERS Safety Report 17340973 (Version 1)
Quarter: 2020Q1

REPORT INFORMATION
  Report Type: Spontaneous
  Country: US (occurrence: US)
  Receive Date: 20200129
  Receipt Date: 20200129
  Transmission Date: 20200409
  Serious: No
  Sender: FDA-Public Use
  Company Number: US-ALLERGAN-1913645US

PATIENT
  Sex: Female

DRUGS (3)
  1. ANTIBIOTIC [Concomitant]
     Active Substance: UNSPECIFIED INGREDIENT
  2. BOTOX [Suspect]
     Active Substance: ONABOTULINUMTOXINA
     Dosage: 100 UNITS, SINGLE
     Dates: start: 20190307, end: 20190307
  3. BOTOX [Suspect]
     Active Substance: ONABOTULINUMTOXINA
     Indication: HYPERTONIC BLADDER
     Dosage: UNK UNK, SINGLE
     Dates: start: 201711, end: 201711

REACTIONS (3)
  - Neuropathy peripheral [Unknown]
  - Urethritis [Unknown]
  - Vaginal infection [Unknown]
